FAERS Safety Report 9632310 (Version 2)
Quarter: 2013Q4

REPORT INFORMATION
  Report Type: Spontaneous
  Country: US (occurrence: US)
  Receive Date: 20131018
  Receipt Date: 20131025
  Transmission Date: 20140711
  Serious: No
  Sender: FDA-Public Use
  Company Number: US-009507513-1309USA013455

PATIENT
  Age: 9 Year
  Sex: Male

DRUGS (6)
  1. NASONEX [Suspect]
     Dosage: UNK MICROGRAM, UNK
     Route: 045
  2. FLUTICASONE PROPIONATE [Interacting]
     Dosage: UNK
     Route: 055
  3. LOPINAVIR (+) RITONAVIR [Interacting]
     Indication: HIV INFECTION
  4. DIDANOSINE [Interacting]
     Indication: HIV INFECTION
  5. LAMIVUDINE [Interacting]
     Indication: HIV INFECTION
     Dosage: UNK
  6. SINGULAIR [Concomitant]

REACTIONS (4)
  - Hirsutism [Recovered/Resolved]
  - Cushingoid [Recovered/Resolved]
  - Weight increased [Recovered/Resolved]
  - Drug interaction [Recovered/Resolved]
